FAERS Safety Report 23244427 (Version 1)
Quarter: 2023Q4

REPORT INFORMATION
  Report Type: Spontaneous
  Country: US (occurrence: US)
  Receive Date: 20231130
  Receipt Date: 20231130
  Transmission Date: 20240109
  Serious: Yes (Death, Hospitalization, Other)
  Sender: FDA-Public Use
  Company Number: US-IPCA LABORATORIES LIMITED-IPC-2023-US-002082

PATIENT

DRUGS (4)
  1. METFORMIN [Suspect]
     Active Substance: METFORMIN HYDROCHLORIDE
     Indication: Weight decreased
     Dosage: UNK
     Route: 065
  2. PHENTERMINE [Concomitant]
     Active Substance: PHENTERMINE
     Indication: Weight decreased
     Dosage: UNK
     Route: 065
  3. HYDROCHLOROTHIAZIDE [Concomitant]
     Active Substance: HYDROCHLOROTHIAZIDE
     Indication: Hypertension
     Dosage: UNK
     Route: 065
  4. FLUOXETINE [Concomitant]
     Active Substance: FLUOXETINE HYDROCHLORIDE
     Indication: Depression
     Dosage: UNK
     Route: 065

REACTIONS (14)
  - Lactic acidosis [Recovered/Resolved]
  - Condition aggravated [Recovered/Resolved]
  - Metabolic acidosis [Recovered/Resolved]
  - Pancytopenia [Unknown]
  - Hypertransaminasaemia [Unknown]
  - Acute kidney injury [Unknown]
  - Hypoglycaemia [Unknown]
  - Adrenal insufficiency [Unknown]
  - Subarachnoid haemorrhage [Unknown]
  - Brain death [Fatal]
  - Hypotension [Unknown]
  - Sepsis [Unknown]
  - Respiratory failure [Unknown]
  - Off label use [Unknown]
